FAERS Safety Report 14679727 (Version 2)
Quarter: 2018Q2

REPORT INFORMATION
  Report Type: Report from Study
  Country: US (occurrence: US)
  Receive Date: 20180326
  Receipt Date: 20180524
  Transmission Date: 20180711
  Serious: Yes (Other)
  Sender: FDA-Public Use
  Company Number: US-JNJFOC-20180114185

PATIENT
  Age: 78 Year
  Sex: Male

DRUGS (8)
  1. ASPIRIN. [Concomitant]
     Active Substance: ASPIRIN
  2. VITAMIN D [Concomitant]
     Active Substance: CHOLECALCIFEROL
  3. TIMOLOL. [Concomitant]
     Active Substance: TIMOLOL
  4. MULTIVITAMINS [Concomitant]
     Active Substance: VITAMINS
  5. IMBRUVICA [Suspect]
     Active Substance: IBRUTINIB
     Indication: CHRONIC LYMPHOCYTIC LEUKAEMIA
     Route: 048
     Dates: start: 20180104
  6. VITAMIN B12 [Concomitant]
     Active Substance: CYANOCOBALAMIN
  7. FLUTICASONE PROPIONATE. [Concomitant]
     Active Substance: FLUTICASONE PROPIONATE
  8. VITAMIN B [Concomitant]
     Active Substance: VITAMIN B

REACTIONS (12)
  - Dental restoration failure [Unknown]
  - Hypotension [Unknown]
  - Pollakiuria [Unknown]
  - Hypoglycaemia [Not Recovered/Not Resolved]
  - Fatigue [Unknown]
  - Mood altered [Not Recovered/Not Resolved]
  - Asthenia [Unknown]
  - Stomatitis [Not Recovered/Not Resolved]
  - Dizziness [Not Recovered/Not Resolved]
  - White blood cell count abnormal [Unknown]
  - Feeling drunk [Unknown]
  - Headache [Unknown]

NARRATIVE: CASE EVENT DATE: 2018
